FAERS Safety Report 8518905 (Version 2)
Quarter: 2012Q4

REPORT INFORMATION
  Report Type: 
  Country: US (occurrence: US)
  Receive Date: 20120418
  Receipt Date: 20121115
  Transmission Date: 20130627
  Serious: Yes (Hospitalization)
  Sender: FDA-Public Use
  Company Number: US-BAYER-2012-035457

PATIENT
  Age: 27 Year
  Sex: Female
  Weight: 58.96 kg

DRUGS (6)
  1. YASMIN [Suspect]
     Indication: CONTRACEPTION
     Dosage: UNK
     Dates: start: 20041021, end: 20061101
  2. YASMIN [Suspect]
     Indication: ACNE
  3. CEPHALEXIN [Concomitant]
     Dosage: UNK
     Dates: start: 20061103
  4. AUGMENTIN [Concomitant]
     Dosage: 875 mg, BID
     Dates: start: 20061102
  5. AMITRIPTYLINE [Concomitant]
     Indication: DEPRESSION
     Dosage: UNK
     Dates: start: 2000, end: 2007
  6. PERCOCET [Concomitant]

REACTIONS (7)
  - Deep vein thrombosis [None]
  - Thrombophlebitis superficial [None]
  - Pain in extremity [None]
  - Emotional distress [None]
  - Asthenia [None]
  - Anxiety [None]
  - Injury [None]
